FAERS Safety Report 17483434 (Version 1)
Quarter: 2020Q1

REPORT INFORMATION
  Report Type: Spontaneous
  Country: US (occurrence: US)
  Receive Date: 20200302
  Receipt Date: 20200302
  Transmission Date: 20200409
  Serious: No
  Sender: FDA-Public Use
  Company Number: US-VERTEX PHARMACEUTICALS-2020-003750

PATIENT
  Age: 65 Year
  Sex: Female

DRUGS (5)
  1. AZTREONAM LYSINE [Suspect]
     Active Substance: AZTREONAM LYSINE
     Indication: CYSTIC FIBROSIS
     Dosage: UNK, TID
     Route: 065
     Dates: start: 20130709
  2. DULOXETINE. [Concomitant]
     Active Substance: DULOXETINE
  3. SODIUM CHLORIDE. [Concomitant]
     Active Substance: SODIUM CHLORIDE
  4. TRIKAFTA [Suspect]
     Active Substance: ELEXACAFTOR\IVACAFTOR\TEZACAFTOR
     Indication: CYSTIC FIBROSIS
     Dosage: UNKNOWN DOSAGE AND FREQUENCY
     Route: 048
     Dates: start: 20200122
  5. CEFOXITIN [Concomitant]
     Active Substance: CEFOXITIN SODIUM

REACTIONS (4)
  - Paranasal sinus hypersecretion [Recovered/Resolved]
  - Cough [Recovering/Resolving]
  - Choking sensation [Recovering/Resolving]
  - Haemorrhage [Unknown]
